FAERS Safety Report 23896093 (Version 1)
Quarter: 2024Q2

REPORT INFORMATION
  Report Type: Spontaneous
  Country: US (occurrence: None)
  Receive Date: 20240523
  Receipt Date: 20240523
  Transmission Date: 20240716
  Serious: Yes (Hospitalization)
  Sender: FDA-Public Use
  Company Number: None

PATIENT
  Age: 62 Year
  Sex: Male

DRUGS (3)
  1. PREDNISONE [Suspect]
     Active Substance: PREDNISONE
     Indication: Prostate cancer
     Dosage: FREQUENCY : DAILY;?
     Route: 048
     Dates: start: 202405
  2. ELIGARD [Suspect]
     Active Substance: LEUPROLIDE ACETATE
     Indication: Prostate cancer
     Dosage: OTHER QUANTITY : 22.5 MG;?FREQUENCY : EVERY TRIMESTER;?
     Route: 058
     Dates: start: 202405
  3. ABIRATERONE ACETATE [Concomitant]
     Active Substance: ABIRATERONE ACETATE

REACTIONS (5)
  - Pyrexia [None]
  - Chills [None]
  - Myalgia [None]
  - Fatigue [None]
  - Adverse reaction [None]

NARRATIVE: CASE EVENT DATE: 20240517
